FAERS Safety Report 9459188 (Version 3)
Quarter: 2014Q1

REPORT INFORMATION
  Report Type: Spontaneous
  Country: NO (occurrence: NO)
  Receive Date: 20130814
  Receipt Date: 20140116
  Transmission Date: 20141002
  Serious: Yes (Life-Threatening, Hospitalization)
  Sender: FDA-Public Use
  Company Number: NO-B.I. PHARMACEUTICALS,INC./RIDGEFIELD-2013-SW-00392NO

PATIENT
  Age: 72 Year
  Sex: Male

DRUGS (32)
  1. CATAPRESAN [Suspect]
     Indication: SEDATION
     Dosage: 1440 MCG
     Dates: start: 20130502, end: 20130509
  2. MERONEM [Concomitant]
     Indication: INFECTION
     Dosage: 3 G
     Dates: start: 20130505, end: 20130512
  3. DALACIN [Concomitant]
     Indication: INFECTION
     Dosage: 1800 MG
     Dates: start: 20130428, end: 20130428
  4. BACTRIM [Concomitant]
     Indication: INFECTION
     Dosage: 40 ML
     Dates: start: 20130519, end: 20130522
  5. POTASSIUM CHLORIDE [Concomitant]
     Indication: MINERAL SUPPLEMENTATION
     Dosage: DOSE 20 UNIT: MMOL
     Route: 048
     Dates: start: 20130517, end: 20130522
  6. LAXOBERAL [Concomitant]
     Dosage: DOSAGE: 10-15 GTT X 1-2
     Dates: start: 20130427, end: 20130522
  7. CETIRIZINE [Concomitant]
     Indication: HYPERSENSITIVITY
     Dosage: 10 ML
     Dates: start: 20130507, end: 20130522
  8. SPIRIX [Concomitant]
     Indication: DIURETIC THERAPY
     Dosage: 50 MG
     Dates: start: 20130503, end: 20130522
  9. VANCOMYCIN [Concomitant]
     Indication: INFECTION
     Dosage: 2 MG
     Dates: start: 20130516, end: 20130522
  10. KEPRA [Concomitant]
     Indication: EPILEPSY
     Dosage: 1000 MG
     Dates: start: 20130508, end: 20130509
  11. KEPRA [Concomitant]
     Dosage: 1500 MG
     Dates: start: 20130510, end: 20130522
  12. NOREPINEPHRINE [Concomitant]
     Indication: VASOPRESSIVE THERAPY
     Dosage: TITRATED TO EFFECT, INTERMITTENT USE AS NEEDED
  13. KLEXANE [Concomitant]
     Indication: THROMBOSIS PROPHYLAXIS
     Dosage: 40 MG
     Dates: start: 20130426, end: 20130427
  14. RIVOTRIL [Concomitant]
     Indication: EPILEPSY
     Dosage: 2 MG
     Dates: start: 20130509, end: 20130516
  15. TRIMETOPRIM [Concomitant]
     Indication: INFECTION
     Dosage: 320 MG
     Route: 048
     Dates: start: 20130517, end: 20130518
  16. SOMAC [Concomitant]
     Indication: PROPHYLAXIS AGAINST GASTROINTESTINAL ULCER
     Dosage: 40 MG
     Dates: start: 20130426, end: 20130522
  17. VENTOLINE [Concomitant]
     Indication: ASTHMA
     Dosage: 30 MG
     Dates: start: 20130426, end: 20130522
  18. AFIPRAN [Concomitant]
     Dosage: 30 MG
     Dates: start: 20130427, end: 20130504
  19. ATROVENT [Concomitant]
     Indication: ASTHMA
     Dosage: 3 MG
     Dates: start: 20130426, end: 20130522
  20. CEFUROXIM [Concomitant]
     Indication: INFECTION
     Dosage: 2250 MG
     Dates: start: 20130426, end: 20130501
  21. SINGULAR [Concomitant]
     Indication: ASTHMA
     Dosage: 10 MG
     Dates: start: 20130513, end: 20130522
  22. BURINEX [Concomitant]
     Dosage: 3 MG
     Dates: start: 20130505, end: 20130522
  23. FRAGMIN [Concomitant]
     Indication: THROMBOSIS PROPHYLAXIS
     Dosage: 2500 U
     Dates: start: 20130428, end: 20130522
  24. ACTRAPID PENFILL [Concomitant]
     Indication: BLOOD GLUCOSE ABNORMAL
     Dosage: 1 IU/ML
     Dates: start: 20130426, end: 20130522
  25. DIAMOX [Concomitant]
     Indication: METABOLIC ALKALOSIS
     Dosage: 500 MG
     Dates: start: 20130427, end: 20130430
  26. SOLU-CORTEF [Concomitant]
     Indication: ASTHMA
     Dosage: 200 MG
     Dates: start: 20130426, end: 20130508
  27. SOLU-CORTEF [Concomitant]
     Dosage: 100 MG
     Dates: start: 20130509, end: 20130521
  28. KAJOS [Concomitant]
     Indication: MINERAL SUPPLEMENTATION
     Dosage: 90 ML
     Route: 048
     Dates: start: 20130501, end: 20130503
  29. KAJOS [Concomitant]
     Dosage: 30 ML
     Route: 048
     Dates: start: 20130504, end: 20130517
  30. RELISTOR [Concomitant]
     Dosage: 6 MG
     Dates: start: 20130427, end: 20130430
  31. NALOXONE [Concomitant]
     Dosage: 0.4 MG
     Dates: start: 20130516, end: 20130516
  32. ESIDREX [Concomitant]
     Indication: POLYURIA
     Dosage: 25 MG
     Dates: start: 20130430, end: 20130507

REACTIONS (3)
  - Coma [Recovered/Resolved]
  - Drug interaction [Recovered/Resolved]
  - Drug effect prolonged [Recovered/Resolved]
